FAERS Safety Report 5572480-X (Version None)
Quarter: 2007Q4

REPORT INFORMATION
  Report Type: 
  Country: None (occurrence: None)
  Receive Date: 20071219
  Receipt Date: 20071205
  Transmission Date: 20080405
  Serious: Yes (Hospitalization, Other)
  Sender: FDA-Public Use
  Company Number: 2007AL005296

PATIENT
  Age: 81 Year
  Sex: Male

DRUGS (6)
  1. METFORMIN HCL [Suspect]
     Dosage: 1 G; QD; PO
     Route: 048
     Dates: end: 20071122
  2. ENALAPRIL [Concomitant]
  3. WARFARIN SODIUM [Concomitant]
  4. FUROSEMIDE [Concomitant]
  5. CARVEDILOL [Concomitant]
  6. NICORANDIL [Concomitant]

REACTIONS (1)
  - RENAL FAILURE ACUTE [None]
